FAERS Safety Report 6766664-2 (Version None)
Quarter: 2010Q2

REPORT INFORMATION
  Report Type: 
  Country: None (occurrence: None)
  Receive Date: 20100611
  Receipt Date: 20100526
  Transmission Date: 20101027
  Serious: Yes (Death, Hospitalization, Other)
  Sender: FDA-Public Use
  Company Number: PHEH2008US09307

PATIENT
  Sex: Male

DRUGS (17)
  1. ZOMETA [Suspect]
     Dosage: 4MG
     Route: 042
  2. AREDIA [Suspect]
  3. OXYCODONE [Concomitant]
  4. PENICILLIN ^GRUNENTHAL^ [Concomitant]
  5. CHLORHEXIDINE GLUCONATE [Concomitant]
  6. HYDROCODONE [Concomitant]
  7. ISOSORBIDE MONONITRATE [Concomitant]
     Dosage: UNK MG, UNK
  8. ATENOLOL [Concomitant]
  9. GABAPENTIN [Concomitant]
  10. OXYCODONE HCL AND ACETAMINOPHEN [Concomitant]
  11. AMBIEN [Concomitant]
  12. AMOXICILLIN [Concomitant]
  13. NORTRIPTYLINE HCL [Concomitant]
  14. NITROGLYCERIN [Concomitant]
  15. SIMVASTATIN [Concomitant]
  16. PREDNISONE [Concomitant]
  17. VIAGRA [Concomitant]

REACTIONS (46)
  - ANGINA UNSTABLE [None]
  - ANHEDONIA [None]
  - ANXIETY [None]
  - AORTIC VALVE DISEASE [None]
  - APNOEA [None]
  - ARTERIOSCLEROSIS CORONARY ARTERY [None]
  - ARTHRITIS [None]
  - BONE DENSITY DECREASED [None]
  - BONE FRAGMENTATION [None]
  - CARDIAC FAILURE CONGESTIVE [None]
  - CARDIOMEGALY [None]
  - CHEST PAIN [None]
  - CORONARY ARTERY BYPASS [None]
  - DEAFNESS [None]
  - DEATH [None]
  - DECREASED APPETITE [None]
  - DENTAL CARIES [None]
  - DYSPHAGIA [None]
  - ESSENTIAL HYPERTENSION [None]
  - FATIGUE [None]
  - GAIT DISTURBANCE [None]
  - HEPATIC CYST [None]
  - HYPERLIPIDAEMIA [None]
  - HYPOAESTHESIA [None]
  - INFLAMMATION [None]
  - INJURY [None]
  - INTESTINAL OBSTRUCTION [None]
  - JAW FRACTURE [None]
  - LIMB INJURY [None]
  - MASS [None]
  - METASTASES TO LUNG [None]
  - MONONEUROPATHY MULTIPLEX [None]
  - MYOCARDIAL INFARCTION [None]
  - NEURALGIA [None]
  - OEDEMA [None]
  - OSTEONECROSIS OF JAW [None]
  - PAIN [None]
  - PERONEAL NERVE PALSY [None]
  - PLEURAL EFFUSION [None]
  - PNEUMONIA PNEUMOCOCCAL [None]
  - POOR DENTAL CONDITION [None]
  - PROSTATE CANCER [None]
  - RENAL CANCER [None]
  - SWELLING [None]
  - TOOTH EXTRACTION [None]
  - TRICUSPID VALVE INCOMPETENCE [None]
